FAERS Safety Report 4353201-5 (Version None)
Quarter: 2004Q2

REPORT INFORMATION
  Report Type: 
  Country: None (occurrence: None)
  Receive Date: 20040503
  Receipt Date: 20040503
  Transmission Date: 20050107
  Serious: Yes (Hospitalization)
  Sender: FDA-Public Use
  Company Number: None

PATIENT
  Age: 36 Year
  Sex: Male
  Weight: 99.7913 kg

DRUGS (4)
  1. CLOZARIL [Suspect]
     Indication: SCHIZOPHRENIA
     Dosage: 400 MG BID
  2. LOPID [Concomitant]
  3. GLYBURIDE [Concomitant]
  4. PIOGLITAZONE HCL [Concomitant]

REACTIONS (2)
  - GRAND MAL CONVULSION [None]
  - MYOCLONUS [None]
